FAERS Safety Report 18435910 (Version 1)
Quarter: 2020Q4

REPORT INFORMATION
  Report Type: Report from Study
  Country: US (occurrence: US)
  Receive Date: 20201028
  Receipt Date: 20201028
  Transmission Date: 20210114
  Serious: Yes (Death, Life-Threatening, Other)
  Sender: FDA-Public Use
  Company Number: US-BAYER-2020-224887

PATIENT
  Age: 75 Year
  Sex: Male

DRUGS (5)
  1. LISINOPRIL. [Suspect]
     Active Substance: LISINOPRIL
  2. LEVOTHYROXINE. [Suspect]
     Active Substance: LEVOTHYROXINE
  3. ACETAMINOPHEN. [Suspect]
     Active Substance: ACETAMINOPHEN
  4. TAMSULOSIN [Suspect]
     Active Substance: TAMSULOSIN
  5. DONEPEZIL. [Suspect]
     Active Substance: DONEPEZIL

REACTIONS (4)
  - Toxicity to various agents [Fatal]
  - Respiratory depression [None]
  - Hypotension [None]
  - Bradycardia [None]
